FAERS Safety Report 9068133 (Version 1)
Quarter: 2013Q1

REPORT INFORMATION
  Report Type: Spontaneous
  Country: US (occurrence: US)
  Receive Date: 20130215
  Receipt Date: 20130215
  Transmission Date: 20140127
  Serious: No
  Sender: FDA-Public Use
  Company Number: US-BIOGENIDEC-2013BI007173

PATIENT
  Age: 24 Year
  Sex: Female

DRUGS (2)
  1. AVONEX [Suspect]
     Indication: MULTIPLE SCLEROSIS
     Route: 030
     Dates: start: 20121130
  2. AVONEX [Suspect]
     Indication: MULTIPLE SCLEROSIS
     Route: 030
     Dates: start: 20121229

REACTIONS (5)
  - Anxiety [Not Recovered/Not Resolved]
  - Underdose [Recovered/Resolved]
  - Coordination abnormal [Not Recovered/Not Resolved]
  - Drug dose omission [Recovered/Resolved]
  - Injection site bruising [Unknown]
